FAERS Safety Report 21090641 (Version 7)
Quarter: 2023Q4

REPORT INFORMATION
  Report Type: Spontaneous
  Country: US (occurrence: US)
  Receive Date: 20220716
  Receipt Date: 20231114
  Transmission Date: 20240110
  Serious: Yes (Disabling)
  Sender: FDA-Public Use
  Company Number: US-SA-SAC20220713000691

PATIENT
  Age: 52 Year
  Sex: Female
  Weight: 81.6 kg

DRUGS (6)
  1. DUPIXENT [Suspect]
     Active Substance: DUPILUMAB
     Indication: Sarcoidosis
     Dosage: 600 MG, 1X
     Route: 058
     Dates: start: 2022, end: 2022
  2. DUPIXENT [Suspect]
     Active Substance: DUPILUMAB
     Indication: Asthma
     Dosage: 300 MG, QOW
     Route: 058
     Dates: start: 20220515
  3. DUPIXENT [Suspect]
     Active Substance: DUPILUMAB
     Indication: Pruritus
  4. DUPIXENT [Suspect]
     Active Substance: DUPILUMAB
     Indication: Dermatitis atopic
  5. HYDROCODONE [Concomitant]
     Active Substance: HYDROCODONE
     Dosage: UNK
  6. GALVAN [Concomitant]
     Dosage: UNK

REACTIONS (16)
  - Loss of personal independence in daily activities [Unknown]
  - Injection site urticaria [Unknown]
  - Injection site discolouration [Unknown]
  - Injection site exfoliation [Unknown]
  - Gingival pain [Unknown]
  - Cough [Unknown]
  - Headache [Unknown]
  - Toothache [Unknown]
  - Dyspnoea [Recovered/Resolved]
  - Migraine [Recovered/Resolved]
  - Sinusitis [Recovered/Resolved]
  - Sinus congestion [Unknown]
  - Upper-airway cough syndrome [Unknown]
  - Malaise [Unknown]
  - Nasopharyngitis [Unknown]
  - Product use in unapproved indication [Unknown]

NARRATIVE: CASE EVENT DATE: 20220101
